FAERS Safety Report 4698950-4 (Version None)
Quarter: 2005Q2

REPORT INFORMATION
  Report Type: 
  Country: None (occurrence: None)
  Receive Date: 20050622
  Receipt Date: 20050622
  Transmission Date: 20051028
  Serious: Yes (Other)
  Sender: FDA-Public Use
  Company Number: None

PATIENT
  Sex: Female

DRUGS (1)
  1. OXYCONTIN [Suspect]
     Indication: INTERVERTEBRAL DISC DEGENERATION
     Dosage: 40 MG 2 BID PO
     Route: 048

REACTIONS (2)
  - HEADACHE [None]
  - NAUSEA [None]
